FAERS Safety Report 9522785 (Version 1)
Quarter: 2013Q3

REPORT INFORMATION
  Report Type: Spontaneous
  Country: GB (occurrence: GB)
  Receive Date: 20130913
  Receipt Date: 20130913
  Transmission Date: 20140515
  Serious: Yes (Other)
  Sender: FDA-Public Use
  Company Number: PHFR2013GB005196

PATIENT
  Sex: Male

DRUGS (3)
  1. CLOZARIL [Suspect]
     Indication: SCHIZOPHRENIA
     Dosage: UNK UKN, UNK
     Route: 048
     Dates: start: 20090429
  2. CLOZARIL [Suspect]
     Dosage: 200 MG, UNK
  3. CLOZARIL [Suspect]
     Dosage: 300 MG, UNK

REACTIONS (2)
  - Electrocardiogram ST segment depression [Unknown]
  - Sinus tachycardia [Unknown]
